FAERS Safety Report 7281460-8 (Version None)
Quarter: 2011Q1

REPORT INFORMATION
  Report Type: 
  Country: None (occurrence: None)
  Receive Date: 20110208
  Receipt Date: 20110126
  Transmission Date: 20110831
  Serious: Yes (Other)
  Sender: FDA-Public Use
  Company Number: PHFR2010GB01028

PATIENT
  Sex: Female

DRUGS (3)
  1. CLOZARIL [Suspect]
     Dosage: 350 MG
     Route: 048
     Dates: start: 20100501
  2. CLOZARIL [Suspect]
     Indication: SCHIZOPHRENIA
     Dosage: UNK
     Route: 048
     Dates: start: 20100330
  3. TOPIRAMATE [Concomitant]
     Indication: BIPOLAR DISORDER
     Dosage: 300 MG
     Route: 048
     Dates: start: 20100601

REACTIONS (4)
  - BIPOLAR DISORDER [None]
  - NEUTROPHIL COUNT INCREASED [None]
  - WHITE BLOOD CELL COUNT INCREASED [None]
  - FULL BLOOD COUNT INCREASED [None]
